FAERS Safety Report 24855945 (Version 2)
Quarter: 2025Q1

REPORT INFORMATION
  Report Type: Spontaneous
  Country: CN (occurrence: CN)
  Receive Date: 20250117
  Receipt Date: 20250120
  Transmission Date: 20250408
  Serious: Yes (Other)
  Sender: Kenvue
  Company Number: CN-KENVUE-20250104575

PATIENT

DRUGS (2)
  1. CHILDRENS MOTRIN [Suspect]
     Active Substance: IBUPROFEN
     Indication: Patent ductus arteriosus
     Dosage: 0.50 MILLILITER, ONCE A DAY
     Route: 048
     Dates: start: 20241226, end: 20241226
  2. CHILDRENS MOTRIN [Suspect]
     Active Substance: IBUPROFEN
     Dosage: 0.25 MILLILITER, ONCE A DAY
     Route: 048
     Dates: start: 20241227, end: 20241227

REACTIONS (2)
  - Off label use [Unknown]
  - Acute kidney injury [Recovering/Resolving]

NARRATIVE: CASE EVENT DATE: 20241226
